FAERS Safety Report 10480751 (Version 2)
Quarter: 2014Q4

REPORT INFORMATION
  Report Type: Spontaneous
  Country: US (occurrence: US)
  Receive Date: 20140929
  Receipt Date: 20141104
  Transmission Date: 20150528
  Serious: Yes (Hospitalization)
  Sender: FDA-Public Use
  Company Number: US-ASTRAZENECA-2014SE72511

PATIENT
  Age: 59 Year
  Sex: Female
  Weight: 63 kg

DRUGS (25)
  1. VASOTEC [Concomitant]
     Active Substance: ENALAPRIL MALEATE
  2. PREDNISONE SHORT TERM [Concomitant]
     Dosage: 4 TAB TWICE DAILY X 3 DAYS
  3. ALBUTEROL. [Concomitant]
     Active Substance: ALBUTEROL
     Indication: DYSPNOEA
     Dosage: 2.5 MG, Q6HWA AND Q3H PRN
     Route: 055
     Dates: start: 20140824
  4. COMBIVENT [Concomitant]
     Active Substance: ALBUTEROL SULFATE\IPRATROPIUM BROMIDE
     Indication: DYSPNOEA
     Dosage: AS NEEDED
  5. ENALAPRIL [Concomitant]
     Active Substance: ENALAPRIL
     Indication: ACUTE CORONARY SYNDROME
     Dates: start: 20140822
  6. ATROVENT [Concomitant]
     Active Substance: IPRATROPIUM BROMIDE
     Indication: CHRONIC OBSTRUCTIVE PULMONARY DISEASE
     Dosage: 0.5 MG Q6HWA AND Q3H PRN
     Route: 055
     Dates: start: 20140824
  7. MEGACE [Concomitant]
     Active Substance: MEGESTROL ACETATE
  8. ANGIOMAX [Concomitant]
     Active Substance: BIVALIRUDIN
     Indication: ACUTE CORONARY SYNDROME
     Route: 042
     Dates: start: 20140822, end: 20140822
  9. BRILINTA [Suspect]
     Active Substance: TICAGRELOR
     Indication: ACUTE CORONARY SYNDROME
     Route: 048
     Dates: start: 20140822, end: 20140827
  10. PLAVIX [Suspect]
     Active Substance: CLOPIDOGREL BISULFATE
     Route: 048
     Dates: start: 20140827, end: 20140831
  11. PREDNISONE SHORT TERM [Concomitant]
     Dosage: 1 TAB TWICE DAILY X 3 DAYS
  12. SPIRIVA [Concomitant]
     Active Substance: TIOTROPIUM BROMIDE MONOHYDRATE
     Indication: CHRONIC OBSTRUCTIVE PULMONARY DISEASE
  13. ASPIRIN. [Concomitant]
     Active Substance: ASPIRIN
  14. PREDNISONE SHORT TERM [Concomitant]
     Dosage: 2 TABS TWICE DAILY X 3 DAY
  15. ALBUTEROL. [Concomitant]
     Active Substance: ALBUTEROL
     Indication: CHRONIC OBSTRUCTIVE PULMONARY DISEASE
     Dosage: 2 PUFF FOR TIMES DAILY
  16. INTEGRILIN [Concomitant]
     Active Substance: EPTIFIBATIDE
     Indication: ACUTE CORONARY SYNDROME
     Route: 042
     Dates: start: 20140822, end: 20140823
  17. METOPROLOL TARTRATE. [Concomitant]
     Active Substance: METOPROLOL TARTRATE
     Indication: ACUTE CORONARY SYNDROME
     Route: 048
     Dates: start: 20140823
  18. ALBUTEROL. [Concomitant]
     Active Substance: ALBUTEROL
     Indication: DYSPNOEA
     Dosage: 2 PUFF FOR TIMES DAILY
  19. ALBUTEROL. [Concomitant]
     Active Substance: ALBUTEROL
     Indication: CHRONIC OBSTRUCTIVE PULMONARY DISEASE
     Dosage: 2.5 MG, Q6HWA AND Q3H PRN
     Route: 055
     Dates: start: 20140824
  20. MEGESTROL [Concomitant]
     Active Substance: MEGESTROL
     Indication: CACHEXIA
     Route: 048
     Dates: start: 20140826, end: 20140831
  21. NARCO [Concomitant]
     Indication: PAIN
     Dosage: 1 TAB Q6H PRN
     Route: 048
     Dates: start: 20140822
  22. BRILINTA [Suspect]
     Active Substance: TICAGRELOR
     Indication: THROMBOSIS PROPHYLAXIS
     Route: 048
     Dates: start: 20140822, end: 20140827
  23. MEGESTROL [Concomitant]
     Active Substance: MEGESTROL
     Indication: DECREASED APPETITE
     Route: 048
     Dates: start: 20140826, end: 20140831
  24. ZOCOR [Concomitant]
     Active Substance: SIMVASTATIN
     Indication: CORONARY ARTERY DISEASE
     Route: 048
     Dates: start: 20140822, end: 20140825
  25. TYLENOL [Concomitant]
     Active Substance: ACETAMINOPHEN
     Indication: PAIN
     Dosage: 500 MG, Q6H, PRN
     Route: 048
     Dates: start: 20140822, end: 20140825

REACTIONS (4)
  - Hypoxia [Unknown]
  - Ejection fraction decreased [Recovered/Resolved]
  - Contusion [Unknown]
  - Acute myocardial infarction [Recovered/Resolved with Sequelae]

NARRATIVE: CASE EVENT DATE: 20140823
